FAERS Safety Report 12480346 (Version 1)
Quarter: 2016Q2

REPORT INFORMATION
  Report Type: Spontaneous
  Country: US (occurrence: None)
  Receive Date: 20160617
  Receipt Date: 20160617
  Transmission Date: 20160815
  Serious: Yes (Other)
  Sender: FDA-Public Use
  Company Number: None

PATIENT
  Age: 9 Month
  Sex: Male
  Weight: 9.53 kg

DRUGS (2)
  1. BABY TEETHING GEL (HYLAND HOMEOPATHIC) [Suspect]
     Active Substance: ATROPA BELLADONNA\CALCIUM PHOSPHATE\CHAMOMILE\COFFEA ARABICA FRUIT
     Indication: TEETHING
     Route: 048
     Dates: start: 20160401, end: 20160526
  2. CHILDRENS TYLENOL [Concomitant]
     Active Substance: ACETAMINOPHEN

REACTIONS (2)
  - Muscular weakness [None]
  - Somnolence [None]

NARRATIVE: CASE EVENT DATE: 20160504
